FAERS Safety Report 5377049-8 (Version None)
Quarter: 2007Q3

REPORT INFORMATION
  Report Type: 
  Country: None (occurrence: None)
  Receive Date: 20070703
  Receipt Date: 20070622
  Transmission Date: 20080115
  Serious: Yes (Other)
  Sender: FDA-Public Use
  Company Number: US-AMGEN-STX227351

PATIENT
  Sex: Female

DRUGS (7)
  1. ENBREL [Suspect]
     Indication: PSORIATIC ARTHROPATHY
     Route: 058
     Dates: start: 20061020
  2. ENBREL [Suspect]
     Indication: PSORIASIS
  3. LISINOPRIL [Concomitant]
  4. TOPROL-XL [Concomitant]
  5. PREVACID [Concomitant]
  6. ALENDRONATE SODIUM [Concomitant]
  7. LOVENOX [Concomitant]

REACTIONS (5)
  - ASTHENIA [None]
  - CEREBROVASCULAR ACCIDENT [None]
  - FATIGUE [None]
  - TRANSIENT ISCHAEMIC ATTACK [None]
  - YAWNING [None]
